FAERS Safety Report 20792853 (Version 2)
Quarter: 2022Q2

REPORT INFORMATION
  Report Type: Spontaneous
  Country: ES (occurrence: ES)
  Receive Date: 20220506
  Receipt Date: 20220527
  Transmission Date: 20220721
  Serious: Yes (Other)
  Sender: FDA-Public Use
  Company Number: ES-ORGANON-O2204ESP002348

PATIENT
  Age: 72 Year
  Sex: Female
  Weight: 57 kg

DRUGS (2)
  1. CARBIDOPA\LEVODOPA [Suspect]
     Active Substance: CARBIDOPA\LEVODOPA
     Indication: Parkinson^s disease
     Dosage: 3 TABLETS (DOSAGE FORM) DAILY, 30 MINUTES BEFORE EACH MAIN MEAL (BREAKFAST, LUNCH, DINNER)
     Route: 048
     Dates: start: 202203
  2. CARBIDOPA\LEVODOPA [Suspect]
     Active Substance: CARBIDOPA\LEVODOPA
     Dosage: HALF A TABLET AT BREAKFAST, LUNCH, AND DINNER
     Route: 048
     Dates: start: 20220518

REACTIONS (8)
  - Parkinson^s disease [Unknown]
  - Head injury [Unknown]
  - Mental disorder [Unknown]
  - Aggression [Unknown]
  - Inappropriate schedule of product administration [Unknown]
  - Product prescribing issue [Unknown]
  - Incorrect dose administered [Unknown]
  - Product communication issue [Unknown]

NARRATIVE: CASE EVENT DATE: 20220101
